FAERS Safety Report 11535567 (Version 4)
Quarter: 2015Q4

REPORT INFORMATION
  Report Type: Report from Study
  Country: US (occurrence: US)
  Receive Date: 20150922
  Receipt Date: 20151021
  Transmission Date: 20160304
  Serious: Yes (Hospitalization)
  Sender: FDA-Public Use
  Company Number: US-BIOGENIDEC-2015BI127974

PATIENT
  Age: 68 Year
  Sex: Female

DRUGS (13)
  1. TECFIDERA [Suspect]
     Active Substance: DIMETHYL FUMARATE
     Indication: RELAPSING-REMITTING MULTIPLE SCLEROSIS
     Route: 048
     Dates: start: 20140220
  2. TECFIDERA [Suspect]
     Active Substance: DIMETHYL FUMARATE
     Indication: RELAPSING-REMITTING MULTIPLE SCLEROSIS
     Route: 048
     Dates: start: 20140319, end: 20140326
  3. ACYCLOVIR. [Concomitant]
     Active Substance: ACYCLOVIR
  4. NAPROXEN. [Concomitant]
     Active Substance: NAPROXEN
  5. OMEPRAZOLE. [Concomitant]
     Active Substance: OMEPRAZOLE
  6. CALCIUM [Concomitant]
     Active Substance: CALCIUM
  7. MAGNESIUM [Concomitant]
     Active Substance: MAGNESIUM
  8. COENZYME Q10 [Concomitant]
     Active Substance: UBIDECARENONE
  9. GABAPENTIN. [Concomitant]
     Active Substance: GABAPENTIN
  10. KRILL OIL [Concomitant]
     Active Substance: DIETARY SUPPLEMENT
  11. TECFIDERA [Suspect]
     Active Substance: DIMETHYL FUMARATE
     Indication: RELAPSING-REMITTING MULTIPLE SCLEROSIS
     Route: 048
     Dates: start: 20140327
  12. ADVAIR DISKUS [Concomitant]
     Active Substance: FLUTICASONE PROPIONATE\SALMETEROL XINAFOATE
  13. ONE A DAY ENERGY [Concomitant]
     Active Substance: VITAMINS

REACTIONS (2)
  - Drug hypersensitivity [Recovered/Resolved]
  - Herpes zoster [Not Recovered/Not Resolved]

NARRATIVE: CASE EVENT DATE: 20150913
